FAERS Safety Report 7859714-3 (Version None)
Quarter: 2011Q4

REPORT INFORMATION
  Report Type: 
  Country: None (occurrence: None)
  Receive Date: 20111027
  Receipt Date: 20111024
  Transmission Date: 20120403
  Serious: Yes (Hospitalization)
  Sender: FDA-Public Use
  Company Number: US-SANOFI-AVENTIS-2011SA043839

PATIENT
  Age: 76 Year
  Sex: Male

DRUGS (15)
  1. DOCETAXEL [Suspect]
     Indication: PROSTATE CANCER
     Route: 041
  2. ALBUTEROL [Concomitant]
  3. HYDROCODONE BITARTRATE [Concomitant]
  4. CEFEPIME HYDROCHLORIDE [Concomitant]
  5. PREDNISONE [Suspect]
     Indication: PROSTATE CANCER
     Route: 048
     Dates: start: 20081016
  6. BENADRYL HCL [Concomitant]
  7. CALCIUM/VITAMIN D [Concomitant]
  8. LOPERAMIDE HCL [Concomitant]
  9. CENTRUM SILVER [Concomitant]
  10. INVESTIGATIONAL DRUG [Suspect]
     Indication: PROSTATE CANCER
     Route: 048
     Dates: start: 20081016, end: 20110602
  11. LISINOPRIL [Concomitant]
  12. LUPRON [Concomitant]
  13. SOLU-MEDROL [Concomitant]
  14. AZITHROMYCIN [Concomitant]
  15. LOVENOX [Concomitant]

REACTIONS (3)
  - CHRONIC OBSTRUCTIVE PULMONARY DISEASE [None]
  - PNEUMONITIS [None]
  - PLEURAL EFFUSION [None]
